FAERS Safety Report 22078234 (Version 1)
Quarter: 2023Q1

REPORT INFORMATION
  Report Type: Spontaneous
  Country: US (occurrence: US)
  Receive Date: 20230309
  Receipt Date: 20230309
  Transmission Date: 20230417
  Serious: Yes (Other)
  Sender: FDA-Public Use
  Company Number: US-SAMSUNG BIOEPIS-SB-2023-06405

PATIENT
  Age: 61 Year
  Sex: Female

DRUGS (8)
  1. INFLIXIMAB [Suspect]
     Active Substance: INFLIXIMAB
     Indication: Colitis microscopic
     Dosage: UNKNOWN
     Route: 065
  2. PREDNISONE [Concomitant]
     Active Substance: PREDNISONE
     Indication: Colitis microscopic
     Dosage: UNKNOWN
     Route: 065
  3. VEDOLIZUMAB [Concomitant]
     Active Substance: VEDOLIZUMAB
     Indication: Colitis microscopic
     Dosage: UNKNOWN
     Route: 065
  4. TOFACITINIB [Concomitant]
     Active Substance: TOFACITINIB
     Indication: Colitis microscopic
     Dosage: UNKNOWN
     Route: 065
  5. OZANIMOD [Concomitant]
     Active Substance: OZANIMOD
     Indication: Colitis microscopic
     Dosage: UNKNOWN
     Route: 065
  6. BUDESONIDE [Concomitant]
     Active Substance: BUDESONIDE
     Indication: Colitis microscopic
     Dosage: SHORT-TERM INDUCTION USE
     Route: 065
  7. TACROLIMUS [Concomitant]
     Active Substance: TACROLIMUS
     Indication: Colitis microscopic
     Dosage: UNKNOWN
     Route: 065
  8. COLESEVELAM [Concomitant]
     Active Substance: COLESEVELAM
     Indication: Colitis microscopic
     Dosage: UNKNOWN
     Route: 065

REACTIONS (4)
  - Colitis microscopic [Recovered/Resolved]
  - Pericarditis [Recovered/Resolved]
  - Arthralgia [Recovered/Resolved]
  - Product use in unapproved indication [Unknown]
